FAERS Safety Report 5010023-X (Version None)
Quarter: 2006Q2

REPORT INFORMATION
  Report Type: 
  Country: None (occurrence: None)
  Receive Date: 20060523
  Receipt Date: 20060508
  Transmission Date: 20061013
  Serious: Yes (Hospitalization, Other)
  Sender: FDA-Public Use
  Company Number: CIP06000820

PATIENT
  Age: 80 Year
  Sex: Male

DRUGS (21)
  1. RISEDRONATE SODIUM [Suspect]
     Indication: OSTEOPOROSIS
     Dosage: 2.5 MG DAILY, ORAL
     Route: 048
     Dates: end: 20060325
  2. PROCTOSEDYL [Concomitant]
  3. FRAMYCETIN SULFATE [Concomitant]
  4. ESCULOSIDE, CINCHOCAINE HYDROCHLORIDE [Concomitant]
  5. IDOMETHINE (INDOMETACIN) [Concomitant]
  6. MAGNESIUM OXIDE [Concomitant]
  7. FOIPAN (CAMOSTAT MESILATE) [Concomitant]
  8. DASEN (SERRAPEPTASE) [Concomitant]
  9. CLEANAL (FUDOSTEINE) [Concomitant]
  10. MUCOSOLVAN (AMBROXOL HYDROCHLORIDE) [Concomitant]
  11. MYTELASE [Concomitant]
  12. ALFAROL (ALFACALCIDOL) [Concomitant]
  13. CALCIUM LACTATE [Concomitant]
  14. FAMOTIDINE [Concomitant]
  15. PREDNISOLONE [Concomitant]
  16. MUCOSTA (REBAMIPIDE) [Concomitant]
  17. SOLETON (ZALTOPROFEN) [Concomitant]
  18. VIT K CAP [Concomitant]
  19. HARNAL (TAMSULOSIN HYDROCHLORIDE) [Concomitant]
  20. BESACOLIN (BETHANECHOL CHLORIDE) [Concomitant]
  21. EUGLUCON (GLIBENCLAMIDE) [Concomitant]

REACTIONS (21)
  - BLOOD CREATINE PHOSPHOKINASE INCREASED [None]
  - C-REACTIVE PROTEIN INCREASED [None]
  - CHEST PAIN [None]
  - CRYPTOGENIC ORGANIZING PNEUMONIA [None]
  - DIVERTICULUM GASTRIC [None]
  - DYSPHAGIA [None]
  - DYSPNOEA [None]
  - GASTRIC ULCER [None]
  - GASTRITIS [None]
  - GASTROOESOPHAGEAL REFLUX DISEASE [None]
  - HAEMATOCRIT DECREASED [None]
  - HAEMOGLOBIN DECREASED [None]
  - HIATUS HERNIA [None]
  - LYMPHOCYTE PERCENTAGE DECREASED [None]
  - MUCOSAL DISCOLOURATION [None]
  - MUCOSAL EROSION [None]
  - NEUTROPHIL PERCENTAGE INCREASED [None]
  - OESOPHAGEAL ULCER [None]
  - OESOPHAGITIS [None]
  - RED BLOOD CELL COUNT DECREASED [None]
  - WHITE BLOOD CELL COUNT INCREASED [None]
